FAERS Safety Report 9767501 (Version 4)
Quarter: 2014Q3

REPORT INFORMATION
  Report Type: Spontaneous
  Country: US (occurrence: US)
  Receive Date: 20131217
  Receipt Date: 20140805
  Transmission Date: 20150326
  Serious: Yes (Other)
  Sender: FDA-Public Use
  Company Number: US-BANPHARM-20131939

PATIENT
  Age: 50 Year
  Sex: Female
  Weight: 95.71 kg

DRUGS (13)
  1. ALEVE [Suspect]
     Active Substance: NAPROXEN SODIUM
     Indication: HEADACHE
     Dosage: 2 DF, PRN,
     Route: 048
     Dates: start: 2013, end: 201311
  2. MIRTAZAPIN [Concomitant]
     Active Substance: MIRTAZAPINE
  3. ALEVE [Concomitant]
     Active Substance: NAPROXEN SODIUM
  4. MULTI [Concomitant]
  5. CARISOPRODOL 350 MG [Concomitant]
     Dosage: PRN,
  6. ALPRAZOLAM. [Concomitant]
     Active Substance: ALPRAZOLAM
  7. XANAX [Concomitant]
     Active Substance: ALPRAZOLAM
  8. MIRTAZAPINE. [Concomitant]
     Active Substance: MIRTAZAPINE
  9. MIGRANAL [Concomitant]
     Active Substance: DIHYDROERGOTAMINE MESYLATE
  10. BAYER ASPIRIN REGIMEN CHEWABLE LOW DOSE ASPIRIN ORANGE [Suspect]
     Active Substance: ASPIRIN
     Indication: CARDIOVASCULAR EVENT PROPHYLAXIS
     Dosage: 1 DF, QD,
     Dates: start: 2013, end: 201311
  11. LAMISIL [Concomitant]
     Active Substance: TERBINAFINE HYDROCHLORIDE
  12. SOMA [Concomitant]
     Active Substance: CARISOPRODOL
  13. DIFLUCAN [Concomitant]
     Active Substance: FLUCONAZOLE

REACTIONS (8)
  - Rectal haemorrhage [Recovered/Resolved]
  - Hypoaesthesia [Unknown]
  - Abdominal pain upper [Recovered/Resolved]
  - Low density lipoprotein increased [None]
  - Chest pain [Recovered/Resolved]
  - Headache [Recovered/Resolved]
  - Neck pain [Unknown]
  - Mean cell haemoglobin concentration decreased [None]

NARRATIVE: CASE EVENT DATE: 2013
